FAERS Safety Report 22222728 (Version 9)
Quarter: 2024Q1

REPORT INFORMATION
  Report Type: Spontaneous
  Country: US (occurrence: US)
  Receive Date: 20230418
  Receipt Date: 20240326
  Transmission Date: 20240409
  Serious: Yes (Other)
  Sender: FDA-Public Use
  Company Number: US-BEH-2023157494

PATIENT
  Age: 47 Year
  Sex: Male
  Weight: 92.971 kg

DRUGS (5)
  1. HAEGARDA [Suspect]
     Active Substance: HUMAN C1-ESTERASE INHIBITOR
     Indication: Hereditary angioedema
     Dosage: 6000 INTERNATIONAL UNIT, BIW
     Route: 058
     Dates: start: 202008
  2. HAEGARDA [Suspect]
     Active Substance: HUMAN C1-ESTERASE INHIBITOR
     Indication: Prophylaxis
     Dosage: 6000 INTERNATIONAL UNIT, BIW
     Route: 058
     Dates: start: 201712
  3. HAEGARDA [Suspect]
     Active Substance: HUMAN C1-ESTERASE INHIBITOR
     Dosage: 6000 INTERNATIONAL UNIT, BIW
     Route: 058
     Dates: start: 20171226
  4. HAEGARDA [Suspect]
     Active Substance: HUMAN C1-ESTERASE INHIBITOR
     Dosage: 5727 INTERNATIONAL UNIT/KILOGRAM
     Route: 058
  5. FIRAZYR [Concomitant]
     Active Substance: ICATIBANT ACETATE

REACTIONS (18)
  - Hereditary angioedema [Recovered/Resolved]
  - Weight decreased [Unknown]
  - Hereditary angioedema [Recovered/Resolved]
  - Hereditary angioedema [Unknown]
  - Hereditary angioedema [Recovered/Resolved]
  - Hereditary angioedema [Recovered/Resolved]
  - Hereditary angioedema [Recovered/Resolved]
  - Hereditary angioedema [Unknown]
  - Abdominal pain upper [Not Recovered/Not Resolved]
  - Abdominal discomfort [Not Recovered/Not Resolved]
  - Hereditary angioedema [Unknown]
  - Hereditary angioedema [Unknown]
  - Hereditary angioedema [Unknown]
  - Hereditary angioedema [Unknown]
  - No adverse event [Unknown]
  - Inappropriate schedule of product administration [Unknown]
  - Hereditary angioedema [Recovered/Resolved]
  - Hereditary angioedema [Recovered/Resolved]

NARRATIVE: CASE EVENT DATE: 20230310
